FAERS Safety Report 7512289-0 (Version None)
Quarter: 2011Q2

REPORT INFORMATION
  Report Type: 
  Country: None (occurrence: None)
  Receive Date: 20110531
  Receipt Date: 20110527
  Transmission Date: 20111010
  Serious: Yes (Other)
  Sender: FDA-Public Use
  Company Number: DE-SANOFI-AVENTIS-2011SA033591

PATIENT
  Age: 69 Year
  Sex: Female

DRUGS (3)
  1. ARAVA [Suspect]
     Dosage: 40 MG
     Route: 048
  2. ARAVA [Suspect]
     Indication: RHEUMATOID ARTHRITIS
     Dosage: 20 MG
     Route: 048
     Dates: start: 20100501
  3. ARAVA [Suspect]
     Route: 048
     Dates: end: 20110523

REACTIONS (2)
  - SKIN ULCER [None]
  - OVERDOSE [None]
